FAERS Safety Report 9576523 (Version 2)
Quarter: 2014Q2

REPORT INFORMATION
  Report Type: Spontaneous
  Country: US (occurrence: US)
  Receive Date: 20131001
  Receipt Date: 20140616
  Transmission Date: 20141212
  Serious: Yes (Hospitalization)
  Sender: FDA-Public Use
  Company Number: US-AMGEN-USASP2013004006

PATIENT
  Age: 71 Year
  Sex: Female

DRUGS (3)
  1. ENBREL [Suspect]
     Indication: RHEUMATOID ARTHRITIS
     Dosage: 50 MG, QWK
     Route: 058
     Dates: start: 20110727
  2. ENBREL [Suspect]
     Dosage: UNK
     Route: 065
  3. METHOTREXATE [Concomitant]
     Dosage: UNK UNK, QWK

REACTIONS (5)
  - Asthma [Recovered/Resolved]
  - Nervousness [Recovered/Resolved]
  - Pain [Recovered/Resolved]
  - Spinal pain [Recovered/Resolved]
  - Malaise [Recovered/Resolved]
